FAERS Safety Report 5961755-8 (Version None)
Quarter: 2008Q4

REPORT INFORMATION
  Report Type: 
  Country: None (occurrence: None)
  Receive Date: 20081121
  Receipt Date: 20081117
  Transmission Date: 20090506
  Serious: Yes (Death, Other)
  Sender: FDA-Public Use
  Company Number: IT-BRISTOL-MYERS SQUIBB COMPANY-14408710

PATIENT
  Age: 68 Year
  Sex: Male

DRUGS (6)
  1. BLEOMYCIN SULFATE [Suspect]
     Indication: DIFFUSE LARGE B-CELL LYMPHOMA
     Dosage: 1DF- 10UNITS/M2 ON WEEKS 2,4,6,8,10 AND 12
     Route: 042
  2. ETOPOSIDE [Suspect]
     Indication: DIFFUSE LARGE B-CELL LYMPHOMA
     Dosage: ETOPOSIDE CAPS, PO 200MG/M2 BOTH ON WEEKS 3,7 + 11
     Route: 042
  3. VINCRISTINE SULFATE [Suspect]
     Indication: DIFFUSE LARGE B-CELL LYMPHOMA
     Route: 042
  4. CYCLOPHOSPHAMIDE [Suspect]
     Indication: DIFFUSE LARGE B-CELL LYMPHOMA
     Dosage: ON WEEKS 1, 5 AND 9
  5. EPIRUBICIN [Suspect]
     Indication: DIFFUSE LARGE B-CELL LYMPHOMA
  6. PREDNISONE TAB [Concomitant]
     Dosage: EVERY OTHER DAY ON WEEKS 1-10 TAPERED DURING WEEKS 11+12
     Route: 048

REACTIONS (3)
  - INTERSTITIAL LUNG DISEASE [None]
  - MUCOSAL INFLAMMATION [None]
  - NEUTROPENIA [None]
